FAERS Safety Report 17364227 (Version 2)
Quarter: 2020Q1

REPORT INFORMATION
  Report Type: Spontaneous
  Country: CH (occurrence: CH)
  Receive Date: 20200204
  Receipt Date: 20200205
  Transmission Date: 20200409
  Serious: Yes (Other)
  Sender: FDA-Public Use
  Company Number: CH-TEVA-2020-CH-1163214

PATIENT
  Sex: Male

DRUGS (3)
  1. PRAMIPEXOL [Concomitant]
     Active Substance: PRAMIPEXOLE
     Dates: start: 201907
  2. ANTABUS [Suspect]
     Active Substance: DISULFIRAM
     Indication: ALCOHOL ABUSE
     Route: 065
     Dates: start: 20190513, end: 20191101
  3. ANTABUS [Suspect]
     Active Substance: DISULFIRAM
     Route: 065
     Dates: start: 20191129, end: 20200107

REACTIONS (2)
  - Insomnia [Recovered/Resolved]
  - Restless legs syndrome [Recovered/Resolved]
